FAERS Safety Report 5036377-6 (Version None)
Quarter: 2006Q2

REPORT INFORMATION
  Report Type: 
  Country: None (occurrence: None)
  Receive Date: 20060601
  Receipt Date: 20060419
  Transmission Date: 20061013
  Serious: No
  Sender: FDA-Public Use
  Company Number: US200604003184

PATIENT
  Age: 63 Year
  Sex: Female

DRUGS (12)
  1. CYMBALTA [Suspect]
     Indication: DEPRESSION
     Dosage: 30 MG, DAILY (1/D)
     Dates: start: 20060419
  2. PREGABALIN (PREGABALIN) [Concomitant]
  3. ACTIGALL [Concomitant]
  4. COLCHICUM JTL LIQ [Concomitant]
  5. ZETIA [Concomitant]
  6. PREVACID [Concomitant]
  7. SULAR [Concomitant]
  8. LAMICTAL [Concomitant]
  9. TOPROL X (METOPROLOL SUCCINATE) [Concomitant]
  10. XANAX [Concomitant]
  11. AMBIEN [Concomitant]
  12. CELEXA [Concomitant]

REACTIONS (1)
  - DYSKINESIA [None]
